FAERS Safety Report 4975683-8 (Version None)
Quarter: 2006Q2

REPORT INFORMATION
  Report Type: 
  Country: None (occurrence: None)
  Receive Date: 20060411
  Receipt Date: 20060327
  Transmission Date: 20061013
  Serious: Yes (Other)
  Sender: FDA-Public Use
  Company Number: 2006-140461-NL

PATIENT
  Age: 39 Year
  Sex: Female

DRUGS (1)
  1. NUVARING [Suspect]
     Dates: start: 20060201, end: 20060101

REACTIONS (12)
  - ABDOMINAL DISTENSION [None]
  - BREAST TENDERNESS [None]
  - DEPRESSION [None]
  - DIZZINESS [None]
  - GENITAL PRURITUS FEMALE [None]
  - HEADACHE [None]
  - MUSCLE SPASMS [None]
  - PRURITUS GENERALISED [None]
  - RASH GENERALISED [None]
  - SENSORY LOSS [None]
  - TRANSIENT ISCHAEMIC ATTACK [None]
  - VOMITING [None]
